FAERS Safety Report 5258047-1 (Version None)
Quarter: 2007Q1

REPORT INFORMATION
  Report Type: 
  Country: None (occurrence: None)
  Receive Date: 20070307
  Receipt Date: 20070226
  Transmission Date: 20070707
  Serious: Yes (Other)
  Sender: FDA-Public Use
  Company Number: US-PFIZER INC-2007015930

PATIENT
  Sex: Female
  Weight: 68 kg

DRUGS (11)
  1. CHANTIX [Suspect]
     Indication: EX-SMOKER
  2. VYTORIN [Concomitant]
     Indication: BLOOD CHOLESTEROL
  3. TOPROL-XL [Concomitant]
     Dosage: DAILY DOSE:12.5MG
  4. SPIRIVA [Concomitant]
     Route: 055
  5. LASIX [Concomitant]
     Dosage: DAILY DOSE:40MG
  6. POTASSIUM ACETATE [Concomitant]
     Dosage: DAILY DOSE:20MEQ
  7. DARVOCET-N 100 [Concomitant]
  8. XANAX [Concomitant]
     Dosage: DAILY DOSE:.5MG
  9. FENOFIBRATE [Concomitant]
  10. FLAXSEED OIL [Concomitant]
  11. DOXYCILIN [Concomitant]

REACTIONS (5)
  - BLOOD CHOLESTEROL INCREASED [None]
  - BLOOD TRIGLYCERIDES INCREASED [None]
  - CONVULSION [None]
  - FEELING ABNORMAL [None]
  - NERVOUSNESS [None]
